FAERS Safety Report 16993370 (Version 1)
Quarter: 2019Q4

REPORT INFORMATION
  Report Type: Report from Study
  Country: US (occurrence: US)
  Receive Date: 20191105
  Receipt Date: 20191105
  Transmission Date: 20200122
  Serious: Yes (Hospitalization)
  Sender: FDA-Public Use
  Company Number: US-PFIZER INC-2017349672

PATIENT
  Age: 69 Year
  Sex: Male
  Weight: 94.78 kg

DRUGS (32)
  1. SODIUM BICARBONATE ATLANTIC [Concomitant]
     Indication: ACUTE KIDNEY INJURY
     Dosage: 650 MG, 3X/DAY
     Route: 048
     Dates: start: 20160808, end: 20171212
  2. ALLOPURINOL. [Concomitant]
     Active Substance: ALLOPURINOL
     Indication: GOUT
     Dosage: 100 MG, DAILY
     Route: 048
     Dates: start: 201409
  3. LOPERAMIDE [Concomitant]
     Active Substance: LOPERAMIDE
     Indication: DIARRHOEA
     Dosage: 2 MG, AS NEEDED
     Route: 048
     Dates: start: 20170314
  4. LORATADINE. [Concomitant]
     Active Substance: LORATADINE
     Indication: SEASONAL ALLERGY
     Dosage: 10 MG, DAILY
     Route: 048
  5. TOLNAFTATE. [Concomitant]
     Active Substance: TOLNAFTATE
     Indication: RASH
     Dosage: 1 %, AS NEEDED, DOSE FORM: SPRAY
     Route: 061
     Dates: start: 201704
  6. SODIUM POLYSTYRENE SULFONATE. [Concomitant]
     Active Substance: SODIUM POLYSTYRENE SULFONATE
     Indication: HYPERKALAEMIA
     Dosage: 60 MG, AS NEEDED
     Route: 048
     Dates: start: 20170503
  7. BISOPROLOL FUMARATE. [Concomitant]
     Active Substance: BISOPROLOL FUMARATE
     Dosage: 10 MG, 2X/DAY
     Route: 048
     Dates: start: 20170517, end: 20170531
  8. HYDROCHLOROTHIAZIDE. [Concomitant]
     Active Substance: HYDROCHLOROTHIAZIDE
     Indication: HYPERTENSION
     Dosage: 25 MG, DAILY
     Route: 048
     Dates: end: 20170627
  9. LEVOTHYROXINE. [Concomitant]
     Active Substance: LEVOTHYROXINE
     Dosage: 137 UG, DAILY
     Route: 048
     Dates: start: 20170629
  10. PROAIR HFA [Concomitant]
     Active Substance: ALBUTEROL SULFATE
     Indication: WHEEZING
  11. REFRESH TEARS [Concomitant]
     Active Substance: CARBOXYMETHYLCELLULOSE SODIUM
     Indication: DRY EYE
     Dosage: 0.5 %, AS NEEDED
     Route: 031
     Dates: start: 20170308
  12. BENZOCAINE/TRICLOSAN [Concomitant]
     Indication: CONTUSION
     Dosage: UNK
     Dates: start: 20170524
  13. LEVOTHYROXINE. [Concomitant]
     Active Substance: LEVOTHYROXINE
     Indication: HYPOTHYROIDISM
     Dosage: 125 UG, DAILY
     Route: 048
     Dates: end: 20170629
  14. DEXAMETHASONE. [Concomitant]
     Active Substance: DEXAMETHASONE
     Indication: PROPHYLAXIS
     Dosage: 2 MG, DAILY
     Route: 048
     Dates: start: 20170212, end: 20170214
  15. PROAIR HFA [Concomitant]
     Active Substance: ALBUTEROL SULFATE
     Indication: SEASONAL ALLERGY
     Dosage: 90 (UNIT NOT REPORTED), DOSE FORM: INHALER
     Route: 048
  16. SALINE NASAL MIST [Concomitant]
     Indication: NASAL DRYNESS
  17. HYDROCHLOROTHIAZIDE. [Concomitant]
     Active Substance: HYDROCHLOROTHIAZIDE
     Dosage: 50 MG, DAILY
     Route: 048
     Dates: start: 20170628
  18. LISINOPRIL. [Concomitant]
     Active Substance: LISINOPRIL
     Indication: HYPERTENSION
     Dosage: 40 MG, DAILY
     Route: 048
  19. BISMUTH SUBSALICYLATE. [Concomitant]
     Active Substance: BISMUTH SUBSALICYLATE
     Indication: DIARRHOEA
     Dosage: 262 MG/15ML, AS NEEDED, DOSE FORM: LIQUID
     Route: 048
  20. SALINE NASAL MIST [Concomitant]
     Indication: NASAL CONGESTION
     Dosage: 0.65 %, AS NEEDED, DOSE FORM: SPRAY
     Route: 045
     Dates: start: 20170308
  21. AXITINIB [Suspect]
     Active Substance: AXITINIB
     Dosage: 5 MG, 2X/DAY
     Dates: start: 20170308
  22. CEPHALEXIN [CEFALEXIN] [Concomitant]
     Active Substance: CEPHALEXIN
     Indication: PROPHYLAXIS
     Dosage: 500 MG, AS NEEDED
     Route: 048
     Dates: start: 2010
  23. SUCRALFATE. [Concomitant]
     Active Substance: SUCRALFATE
     Indication: PROPHYLAXIS
     Dosage: 1 G, 2X/DAY
     Route: 048
     Dates: start: 20170202
  24. X4P-001 [Suspect]
     Active Substance: INVESTIGATIONAL PRODUCT
     Dosage: 400 MG, 1X/DAY
     Dates: start: 20170308
  25. COLCRYS [Concomitant]
     Active Substance: COLCHICINE
     Indication: GOUT
     Dosage: 0.6 MG, 2X/DAY
     Route: 048
     Dates: start: 201511
  26. PROCHLORPERAZINE MALEATE. [Concomitant]
     Active Substance: PROCHLORPERAZINE MALEATE
     Indication: NAUSEA
     Dosage: 10 MG, UNK
     Route: 048
     Dates: start: 20170628
  27. BISOPROLOL FUMARATE. [Concomitant]
     Active Substance: BISOPROLOL FUMARATE
     Indication: HYPERTENSION
     Dosage: 10 MG, DAILY
     Route: 048
     Dates: end: 20170517
  28. AMLODIPINE [Concomitant]
     Active Substance: AMLODIPINE BESYLATE
     Indication: HYPERTENSION
     Dosage: 5 MG, DAILY
     Route: 048
     Dates: start: 201611
  29. ACETAMINOPHEN. [Concomitant]
     Active Substance: ACETAMINOPHEN
     Indication: PAIN
     Dosage: 500 MG, AS NEEDED
     Route: 048
  30. BISOPROLOL FUMARATE. [Concomitant]
     Active Substance: BISOPROLOL FUMARATE
     Dosage: 10 MG, 3X/DAY
     Route: 048
     Dates: start: 20170531
  31. DEXAMETHASONE. [Concomitant]
     Active Substance: DEXAMETHASONE
     Dosage: 1 MG, DAILY
     Route: 048
     Dates: start: 20170215, end: 20170217
  32. DEXAMETHASONE. [Concomitant]
     Active Substance: DEXAMETHASONE
     Dosage: 1 MG, ALTERNATE DAY
     Route: 048
     Dates: start: 20170218, end: 20170222

REACTIONS (2)
  - Diarrhoea [Recovered/Resolved]
  - Chronic kidney disease [Recovered/Resolved]

NARRATIVE: CASE EVENT DATE: 20170808
